FAERS Safety Report 7501963-8 (Version None)
Quarter: 2011Q2

REPORT INFORMATION
  Report Type: 
  Country: None (occurrence: None)
  Receive Date: 20110525
  Receipt Date: 20110523
  Transmission Date: 20111010
  Serious: Yes (Other)
  Sender: FDA-Public Use
  Company Number: US-PFIZER INC-2011111556

PATIENT
  Sex: Female
  Weight: 65.76 kg

DRUGS (2)
  1. OXYCODONE [Concomitant]
     Indication: BACK PAIN
     Dosage: 7.5 MG, 2X/DAY
     Route: 048
  2. CHANTIX [Suspect]
     Indication: SMOKING CESSATION THERAPY
     Dosage: 0.5 MG, 1X/DAY
     Route: 048
     Dates: start: 20110501

REACTIONS (2)
  - CONSTIPATION [None]
  - BACK PAIN [None]
